FAERS Safety Report 7900629-X (Version None)
Quarter: 2011Q4

REPORT INFORMATION
  Report Type: 
  Country: None (occurrence: None)
  Receive Date: 20111104
  Receipt Date: 20111021
  Transmission Date: 20120403
  Serious: Yes (Death, Other)
  Sender: FDA-Public Use
  Company Number: 2011MA015539

PATIENT
  Age: 33 Year
  Sex: Male

DRUGS (7)
  1. METHADONE HCL [Suspect]
     Indication: DRUG DEPENDENCE
     Dosage: 45 MG;QD;PO
     Route: 048
     Dates: start: 20110101
  2. TEMAZEPAM [Suspect]
     Dosage: PO
     Route: 048
  3. CLOZARIL [Suspect]
     Indication: SCHIZOPHRENIA
     Dosage: 350 MG;QD;PO
     Route: 048
     Dates: start: 20101026
  4. HYDROBROMIDE [Concomitant]
  5. HYOSCINE [Concomitant]
  6. DIAMORPHINE (DIAMORPHINE) [Suspect]
     Dates: start: 20110101
  7. HEROIN [Concomitant]

REACTIONS (1)
  - DRUG ABUSE [None]
